FAERS Safety Report 20628451 (Version 1)
Quarter: 2022Q1

REPORT INFORMATION
  Report Type: Spontaneous
  Country: US (occurrence: None)
  Receive Date: 20220323
  Receipt Date: 20220323
  Transmission Date: 20220424
  Serious: Yes (Other)
  Sender: FDA-Public Use
  Company Number: US-Eisai Medical Research-EC-2022-110988

PATIENT
  Age: 52 Year
  Sex: Female

DRUGS (2)
  1. LENVATINIB [Suspect]
     Active Substance: LENVATINIB
     Indication: Endometrial cancer stage IV
     Dosage: DAILY (DOSE UNKNOWN)
     Route: 048
  2. PEMBROLIZUMAB [Suspect]
     Active Substance: PEMBROLIZUMAB
     Indication: Endometrial cancer stage IV
     Dosage: DOSE UNKNOWN
     Route: 042

REACTIONS (5)
  - Autoimmune retinopathy [Recovered/Resolved]
  - Arrhythmia [Unknown]
  - Electrolyte imbalance [Unknown]
  - Hypothyroidism [Unknown]
  - Diarrhoea [Unknown]
